FAERS Safety Report 7292535-1 (Version None)
Quarter: 2011Q1

REPORT INFORMATION
  Report Type: 
  Country: None (occurrence: None)
  Receive Date: 20110215
  Receipt Date: 20110203
  Transmission Date: 20110831
  Serious: Yes (Death, Hospitalization)
  Sender: FDA-Public Use
  Company Number: ES-CELGENEUS-144-21880-11010205

PATIENT
  Sex: Male

DRUGS (1)
  1. REVLIMID [Suspect]
     Route: 048
     Dates: start: 20101228, end: 20110104

REACTIONS (5)
  - PAIN [None]
  - HODGKIN'S DISEASE [None]
  - ASTHENIA [None]
  - THROMBOCYTOPENIA [None]
  - ANAEMIA [None]
